FAERS Safety Report 9298697 (Version 1)
Quarter: 2013Q2

REPORT INFORMATION
  Report Type: Spontaneous
  Country: US (occurrence: US)
  Receive Date: 20130517
  Receipt Date: 20130517
  Transmission Date: 20140414
  Serious: Yes (Hospitalization, Other)
  Sender: FDA-Public Use
  Company Number: US-RB-037469-12

PATIENT
  Age: 0 None
  Sex: Female

DRUGS (3)
  1. SUBOXONE FILM [Suspect]
     Indication: DRUG DEPENDENCE
     Route: 064
     Dates: start: 201104, end: 201106
  2. SUBUTEX [Suspect]
     Indication: DRUG DEPENDENCE
     Route: 064
     Dates: start: 201106, end: 201112
  3. METHADONE [Suspect]
     Indication: DRUG DEPENDENCE
     Dosage: DOSE UNKNOWN
     Route: 064
     Dates: start: 201112, end: 20120106

REACTIONS (2)
  - Foetal exposure during pregnancy [Recovered/Resolved]
  - Breast milk substitute intolerance [Recovered/Resolved]
